FAERS Safety Report 5001785-6 (Version None)
Quarter: 2006Q2

REPORT INFORMATION
  Report Type: 
  Country: None (occurrence: None)
  Receive Date: 20060512
  Receipt Date: 20060512
  Transmission Date: 20061013
  Serious: Yes (Hospitalization)
  Sender: FDA-Public Use
  Company Number: None

PATIENT
  Age: 67 Year
  Sex: Female
  Weight: 78.5 kg

DRUGS (21)
  1. BACTRIM DS [Suspect]
     Indication: PNEUMOCYSTIS JIROVECI PNEUMONIA
     Dosage: 800 MG/160 MG M,W,F PO
     Route: 048
     Dates: start: 20060207, end: 20060327
  2. BACTRIM DS [Suspect]
     Indication: PROPHYLAXIS
     Dosage: 800 MG/160 MG M,W,F PO
     Route: 048
     Dates: start: 20060207, end: 20060327
  3. SPIRONOLACTONE [Concomitant]
  4. IMDUR [Concomitant]
  5. IRON [Concomitant]
  6. HYDRALAZINE HCL [Concomitant]
  7. DIGOXIN [Concomitant]
  8. LASIX [Concomitant]
  9. VASOTEC [Concomitant]
  10. COUMADIN [Concomitant]
  11. ALLOPURINOL [Concomitant]
  12. PROTONIX [Concomitant]
  13. FOSAMAX [Concomitant]
  14. PREDNISONE [Concomitant]
  15. FLONASE [Concomitant]
  16. SPIRIVA [Concomitant]
  17. ADVAIR DISKUS 100/50 [Concomitant]
  18. THEOPHYLLINE [Concomitant]
  19. INSULIN [Concomitant]
  20. SENNA [Concomitant]
  21. COLACE [Concomitant]

REACTIONS (2)
  - ABDOMINAL PAIN [None]
  - JAUNDICE CHOLESTATIC [None]
